FAERS Safety Report 18519393 (Version 1)
Quarter: 2020Q4

REPORT INFORMATION
  Report Type: Spontaneous
  Country: US (occurrence: US)
  Receive Date: 20201118
  Receipt Date: 20201118
  Transmission Date: 20210114
  Serious: Yes (Other)
  Sender: FDA-Public Use
  Company Number: US-PURDUE-USA-2020-0177300

PATIENT
  Sex: Female

DRUGS (2)
  1. HYDROCODONE BITARTRATE AND ACETAMINOPHEN [Suspect]
     Active Substance: ACETAMINOPHEN\HYDROCODONE BITARTRATE
     Indication: ARTHRALGIA
     Dosage: UNK
     Route: 048
  2. LORTAB [Concomitant]
     Active Substance: ACETAMINOPHEN\HYDROCODONE BITARTRATE
     Indication: PRODUCT USED FOR UNKNOWN INDICATION
     Dosage: UNK
     Route: 065

REACTIONS (20)
  - Drug dependence [Unknown]
  - Back pain [Unknown]
  - Insomnia [Unknown]
  - Crying [Unknown]
  - Hypertension [Unknown]
  - Affective disorder [Unknown]
  - Cerebrovascular accident [Unknown]
  - Energy increased [Unknown]
  - Post-traumatic stress disorder [Unknown]
  - Depression [Unknown]
  - Vomiting [Unknown]
  - Cardiac failure congestive [Unknown]
  - Panic attack [Unknown]
  - Nausea [Unknown]
  - Hepatic failure [Unknown]
  - Illness [Unknown]
  - Overdose [Unknown]
  - Suicidal behaviour [Unknown]
  - Anxiety [Unknown]
  - Social avoidant behaviour [Unknown]
